FAERS Safety Report 17742574 (Version 2)
Quarter: 2020Q2

REPORT INFORMATION
  Report Type: Spontaneous
  Country: DE (occurrence: DE)
  Receive Date: 20200504
  Receipt Date: 20200521
  Transmission Date: 20200714
  Serious: Yes (Death)
  Sender: FDA-Public Use
  Company Number: DE-ROCHE-2590898

PATIENT
  Sex: Male
  Weight: 85 kg

DRUGS (4)
  1. NOREPINEPHRINE. [Concomitant]
     Active Substance: NOREPINEPHRINE
     Indication: COVID-19
  2. ROACTEMRA [Suspect]
     Active Substance: TOCILIZUMAB
     Indication: MULTIPLE ORGAN DYSFUNCTION SYNDROME
  3. ADRENALINE [EPINEPHRINE] [Concomitant]
     Active Substance: EPINEPHRINE
  4. ROACTEMRA [Suspect]
     Active Substance: TOCILIZUMAB
     Indication: OFF LABEL USE
     Dosage: 18/APR/2020 ONCE
     Route: 042
     Dates: end: 20200418

REACTIONS (3)
  - Intentional product use issue [Unknown]
  - Off label use [Unknown]
  - Lactic acidosis [Fatal]

NARRATIVE: CASE EVENT DATE: 202004
